FAERS Safety Report 6535291-4 (Version None)
Quarter: 2010Q1

REPORT INFORMATION
  Report Type: 
  Country: None (occurrence: None)
  Receive Date: 20100113
  Receipt Date: 20100104
  Transmission Date: 20100710
  Serious: Yes (Hospitalization)
  Sender: FDA-Public Use
  Company Number: FR-ROCHE-568615

PATIENT
  Sex: Female
  Weight: 71 kg

DRUGS (4)
  1. PEG-INTERFERON ALFA 2A (RO 25-8310) [Suspect]
     Route: 058
     Dates: start: 20080128, end: 20080601
  2. RIBAVIRIN [Suspect]
     Route: 048
     Dates: start: 20080128, end: 20080601
  3. EPOETIN BETA [Suspect]
     Dosage: UNIT REPORTED AS UI.
     Route: 058
     Dates: start: 20080314, end: 20080601
  4. ETIFOXINE [Suspect]
     Indication: ANXIETY
     Route: 048
     Dates: start: 20080422, end: 20080601

REACTIONS (1)
  - ERYTHEMA NODOSUM [None]
